FAERS Safety Report 23389754 (Version 2)
Quarter: 2024Q2

REPORT INFORMATION
  Report Type: Spontaneous
  Country: US (occurrence: US)
  Receive Date: 20240111
  Receipt Date: 20240418
  Transmission Date: 20240716
  Serious: Yes (Other)
  Sender: FDA-Public Use
  Company Number: US-BRISTOL-MYERS SQUIBB COMPANY-2024-005336

PATIENT
  Age: 58 Year
  Sex: Male

DRUGS (2)
  1. OPDIVO [Suspect]
     Active Substance: NIVOLUMAB
     Indication: Renal cell carcinoma
     Dosage: DOSE : OPD 363MG / YER 121.1MG;     FREQ : EVERY 3 WEEKS?4 X 100MG VIAL IV SOLUTION FOR INFUSION
     Route: 042
  2. YERVOY [Suspect]
     Active Substance: IPILIMUMAB
     Indication: Renal cell carcinoma
     Dosage: 3 X 50MG VIALS IV SOLUTION FOR INFUSION?DOSE : OPD 363MG / YER 121.1MG;     FREQ : EVERY 3 WEEKS
     Route: 042

REACTIONS (1)
  - Malignant neoplasm progression [Unknown]
